FAERS Safety Report 18683243 (Version 1)
Quarter: 2020Q4

REPORT INFORMATION
  Report Type: Spontaneous
  Country: US (occurrence: US)
  Receive Date: 20201230
  Receipt Date: 20201230
  Transmission Date: 20210114
  Serious: Yes (Other)
  Sender: FDA-Public Use
  Company Number: US-MYLANLABS-2020M1105063

PATIENT
  Age: 53 Year
  Sex: Male

DRUGS (3)
  1. DOXYCYCLINE. [Concomitant]
     Active Substance: DOXYCYCLINE
     Indication: MYCOBACTERIAL PERITONITIS
     Dosage: 100 MILLIGRAM, BID
     Route: 065
  2. MOXIFLOXACIN. [Concomitant]
     Active Substance: MOXIFLOXACIN
     Indication: MYCOBACTERIAL PERITONITIS
     Dosage: 400 MILLIGRAM, QD
     Route: 065
  3. SULPHAMETHOXAZOLE/TRIMETHOPRIM [Suspect]
     Active Substance: SULFAMETHOXAZOLE\TRIMETHOPRIM
     Indication: MYCOBACTERIAL PERITONITIS
     Route: 065

REACTIONS (2)
  - Off label use [Unknown]
  - Leukopenia [Recovering/Resolving]
